FAERS Safety Report 11906619 (Version 1)
Quarter: 2016Q1

REPORT INFORMATION
  Report Type: Spontaneous
  Country: US (occurrence: None)
  Receive Date: 20160108
  Receipt Date: 20160108
  Transmission Date: 20160526
  Serious: Yes (Disabling)
  Sender: FDA-Public Use
  Company Number: None

PATIENT
  Age: 39 Year
  Sex: Female
  Weight: 59.88 kg

DRUGS (3)
  1. AZELASTINE [Concomitant]
     Active Substance: AZELASTINE
  2. NASONEX [Suspect]
     Active Substance: MOMETASONE FUROATE
     Indication: RHINITIS ALLERGIC
     Dosage: TWO SPRAYS TWICE A DAY
     Route: 055
     Dates: start: 20150331, end: 20160107
  3. IPATROPIUM BROMIDE [Concomitant]

REACTIONS (2)
  - Herpes zoster [None]
  - Immune system disorder [None]

NARRATIVE: CASE EVENT DATE: 20160104
